FAERS Safety Report 17005741 (Version 3)
Quarter: 2019Q4

REPORT INFORMATION
  Report Type: Report from Study
  Country: None (occurrence: US)
  Receive Date: 20191107
  Receipt Date: 20191219
  Transmission Date: 20200122
  Serious: Yes (Hospitalization)
  Sender: FDA-Public Use
  Company Number: US-ABBVIE-19P-163-2986080-00

PATIENT
  Age: 15 Year
  Sex: Male
  Weight: 107.4 kg

DRUGS (14)
  1. VENETOCLAX. [Suspect]
     Active Substance: VENETOCLAX
     Indication: REFRACTORY CANCER
     Route: 048
     Dates: start: 20191016, end: 20191016
  2. VINCRISTINE [Suspect]
     Active Substance: VINCRISTINE
     Indication: REFRACTORY CANCER
     Route: 042
     Dates: start: 20191019
  3. DASATINIB. [Suspect]
     Active Substance: DASATINIB
     Indication: RECURRENT CANCER
  4. VINCRISTINE [Suspect]
     Active Substance: VINCRISTINE
     Indication: RECURRENT CANCER
  5. PEGASPARAGINASE [Suspect]
     Active Substance: PEGASPARGASE
     Indication: RECURRENT CANCER
     Dosage: 2500 IU/M2
     Route: 042
     Dates: start: 20191019, end: 20191019
  6. GRANISETRON [Concomitant]
     Active Substance: GRANISETRON
     Indication: NAUSEA
     Route: 048
     Dates: start: 20191021, end: 20191030
  7. GRANISETRON [Concomitant]
     Active Substance: GRANISETRON
     Indication: VOMITING
     Route: 062
     Dates: start: 20191030
  8. VENETOCLAX. [Suspect]
     Active Substance: VENETOCLAX
     Route: 048
     Dates: start: 20191018
  9. ALLOPURINOL. [Concomitant]
     Active Substance: ALLOPURINOL
     Indication: PROPHYLAXIS
     Dates: start: 20191012, end: 20191021
  10. CALCIUM CARBONATE. [Concomitant]
     Active Substance: CALCIUM CARBONATE
     Indication: GASTROOESOPHAGEAL REFLUX DISEASE
     Route: 048
     Dates: start: 20191022
  11. DASATINIB. [Suspect]
     Active Substance: DASATINIB
     Indication: REFRACTORY CANCER
     Route: 048
     Dates: start: 20191019
  12. NORMAL SALINE [Concomitant]
     Active Substance: SODIUM CHLORIDE
     Indication: PROPHYLAXIS
     Dates: start: 20191012, end: 20191021
  13. VENETOCLAX. [Suspect]
     Active Substance: VENETOCLAX
     Indication: RECURRENT CANCER
     Route: 048
     Dates: start: 20191017, end: 20191017
  14. PEGASPARAGINASE [Suspect]
     Active Substance: PEGASPARGASE
     Indication: REFRACTORY CANCER
     Route: 048
     Dates: start: 20191101, end: 20191101

REACTIONS (1)
  - Abdominal pain [Recovered/Resolved]

NARRATIVE: CASE EVENT DATE: 20191027
